FAERS Safety Report 8024253-6 (Version None)
Quarter: 2012Q1

REPORT INFORMATION
  Report Type: 
  Country: None (occurrence: None)
  Receive Date: 20120105
  Receipt Date: 20120104
  Transmission Date: 20120608
  Serious: Yes (Death)
  Sender: FDA-Public Use
  Company Number: PHEH2012US000541

PATIENT
  Sex: Female

DRUGS (1)
  1. TOBI [Suspect]
     Indication: BRONCHITIS
     Dosage: 300 MG/5 ML TWICE DAILY
     Dates: start: 20090917

REACTIONS (2)
  - DEATH [None]
  - GENERAL PHYSICAL CONDITION ABNORMAL [None]
